FAERS Safety Report 4552036-8 (Version None)
Quarter: 2005Q1

REPORT INFORMATION
  Report Type: 
  Country: None (occurrence: None)
  Receive Date: 20050113
  Receipt Date: 20041123
  Transmission Date: 20050727
  Serious: Yes (Other)
  Sender: FDA-Public Use
  Company Number: US-MERCK-0411USA03836

PATIENT
  Sex: Female
  Weight: 61 kg

DRUGS (8)
  1. ZETIA [Suspect]
     Indication: HYPERLIPIDAEMIA
     Route: 048
     Dates: start: 20030912, end: 20040901
  2. ZETIA [Suspect]
     Route: 048
     Dates: end: 20040920
  3. PREMARIN [Concomitant]
     Indication: MENOPAUSE
     Route: 048
     Dates: start: 19930101
  4. TEGRETOL-XR [Concomitant]
     Indication: PARTIAL SEIZURES
     Route: 048
     Dates: start: 19930101
  5. SOMA [Concomitant]
     Indication: BONE PAIN
     Route: 048
     Dates: start: 19930101
  6. VASOTEC [Concomitant]
     Indication: HYPERTENSION
     Route: 048
     Dates: start: 19910101
  7. ALLEGRA [Concomitant]
     Indication: HYPERSENSITIVITY
     Route: 048
     Dates: start: 20030101
  8. FLONASE [Concomitant]
     Route: 065

REACTIONS (1)
  - MYALGIA [None]
